FAERS Safety Report 15356374 (Version 1)
Quarter: 2018Q3

REPORT INFORMATION
  Report Type: Spontaneous
  Country: GB (occurrence: GB)
  Receive Date: 20180906
  Receipt Date: 20180906
  Transmission Date: 20181010
  Serious: Yes (Other)
  Sender: FDA-Public Use
  Company Number: GB-TEVA-2018-GB-951856

PATIENT
  Age: 51 Year
  Sex: Female

DRUGS (8)
  1. PREGABALIN. [Concomitant]
     Active Substance: PREGABALIN
     Indication: ANXIETY
     Route: 048
     Dates: start: 20180725
  2. FOLIC ACID. [Concomitant]
     Active Substance: FOLIC ACID
     Indication: FOLATE DEFICIENCY
     Route: 048
     Dates: start: 20180712
  3. ZOPICLONE [Concomitant]
     Active Substance: ZOPICLONE
     Route: 065
  4. MIRTAZAPINE. [Concomitant]
     Active Substance: MIRTAZAPINE
     Indication: DEPRESSION
     Route: 048
     Dates: start: 20180720
  5. VITAMIN B [Concomitant]
     Active Substance: VITAMIN B
     Indication: ALCOHOLISM
     Dosage: 2 DOSAGE FORMS DAILY;
     Route: 048
     Dates: start: 20180712
  6. QUETIAPINE. [Suspect]
     Active Substance: QUETIAPINE
     Route: 048
     Dates: start: 20180720
  7. ADCAL [Concomitant]
     Active Substance: CALCIUM CARBONATE
     Route: 065
  8. THIAMINE [Concomitant]
     Active Substance: THIAMINE
     Indication: ALCOHOLISM
     Route: 048
     Dates: start: 20180712

REACTIONS (2)
  - Urinary hesitation [Recovered/Resolved]
  - Urinary retention [Recovered/Resolved]

NARRATIVE: CASE EVENT DATE: 20180713
